FAERS Safety Report 9028652 (Version 2)
Quarter: 2013Q1

REPORT INFORMATION
  Report Type: Spontaneous
  Country: MX (occurrence: MX)
  Receive Date: 20130124
  Receipt Date: 20130311
  Transmission Date: 20140127
  Serious: Yes (Death, Other)
  Sender: FDA-Public Use
  Company Number: PHHY2013MX006427

PATIENT
  Age: 83 Year
  Sex: Female

DRUGS (3)
  1. ONBREZ [Suspect]
     Dosage: UNK
  2. EXFORGE [Suspect]
     Indication: HYPERTENSION
     Dosage: 1 DF, UNK
     Route: 048
     Dates: start: 201211, end: 201302
  3. COZAAR [Concomitant]
     Indication: BLOOD PRESSURE INCREASED

REACTIONS (5)
  - Musculoskeletal disorder [Fatal]
  - Mobility decreased [Fatal]
  - Feeling abnormal [Fatal]
  - Renal disorder [Not Recovered/Not Resolved]
  - Cardiac arrest [Fatal]
